FAERS Safety Report 9558806 (Version 3)
Quarter: 2013Q4

REPORT INFORMATION
  Report Type: Spontaneous
  Country: CA (occurrence: CA)
  Receive Date: 20130926
  Receipt Date: 20131015
  Transmission Date: 20140711
  Serious: Yes (Hospitalization, Other)
  Sender: FDA-Public Use
  Company Number: CA-ROCHE-1279622

PATIENT
  Age: 58 Year
  Sex: Male

DRUGS (2)
  1. XOLAIR [Suspect]
     Indication: IDIOPATHIC URTICARIA
     Route: 058
     Dates: start: 20121212
  2. XOLAIR [Suspect]
     Route: 058
     Dates: start: 20130919

REACTIONS (6)
  - Myocardial infarction [Unknown]
  - Chest discomfort [Unknown]
  - Dyspnoea [Unknown]
  - Hyperhidrosis [Unknown]
  - Off label use [Unknown]
  - Infarction [Not Recovered/Not Resolved]
